FAERS Safety Report 9437320 (Version 2)
Quarter: 2013Q3

REPORT INFORMATION
  Report Type: Other
  Country: DK (occurrence: US)
  Receive Date: 20130802
  Receipt Date: 20130809
  Transmission Date: 20140515
  Serious: Yes (Other)
  Sender: FDA-Public Use
  Company Number: US-FRI-1000047433

PATIENT
  Age: 21 Year
  Sex: Male

DRUGS (2)
  1. CITALOPRAM [Suspect]
     Indication: PRODUCT USED FOR UNKNOWN INDICATION
     Dosage: OVERDOSE: UNKNOWN DOSE, POTENTIALLY 11.6 G
  2. OLANZAPINE [Suspect]
     Indication: PRODUCT USED FOR UNKNOWN INDICATION
     Dosage: OVERDOSE: UNKNOWN DOSE

REACTIONS (6)
  - Convulsion [Unknown]
  - Cardiotoxicity [Unknown]
  - Electrocardiogram QRS complex prolonged [Unknown]
  - Neurotoxicity [Unknown]
  - Hypotension [Unknown]
  - Overdose [Unknown]
